FAERS Safety Report 6525692-2 (Version None)
Quarter: 2009Q4

REPORT INFORMATION
  Report Type: 
  Country: None (occurrence: None)
  Receive Date: 20091228
  Receipt Date: 20091210
  Transmission Date: 20100525
  Serious: Yes (Hospitalization)
  Sender: FDA-Public Use
  Company Number: IDA-00309

PATIENT
  Age: 2 Year
  Sex: Male

DRUGS (1)
  1. PROPRANOLOL [Suspect]
     Indication: LONG QT SYNDROME
     Dosage: 12 MG TID

REACTIONS (5)
  - BRADYCARDIA [None]
  - HYPOGLYCAEMIC UNCONSCIOUSNESS [None]
  - HYPOTONIA [None]
  - KETOSIS [None]
  - UNRESPONSIVE TO STIMULI [None]
